FAERS Safety Report 7770636-9 (Version None)
Quarter: 2011Q3

REPORT INFORMATION
  Report Type: 
  Country: None (occurrence: None)
  Receive Date: 20110922
  Receipt Date: 20110921
  Transmission Date: 20111222
  Serious: Yes (Hospitalization)
  Sender: FDA-Public Use
  Company Number: PHHY2011NL76239

PATIENT
  Sex: Male
  Weight: 71 kg

DRUGS (3)
  1. ZOMETA [Suspect]
     Indication: PROSTATE CANCER METASTATIC
     Dosage: 4 MG/5 ML 1X PER 28 DAYS
     Dates: start: 20110110
  2. CABAZITAXEL [Concomitant]
     Dosage: UNK UKN, UNK
     Route: 065
  3. ZOMETA [Suspect]
     Dosage: 4 MG/5 ML 1X PER 28 DAYS
     Dates: start: 20110801

REACTIONS (2)
  - HAEMATURIA [None]
  - HAEMORRHAGE [None]
